FAERS Safety Report 16931076 (Version 1)
Quarter: 2019Q4

REPORT INFORMATION
  Report Type: Spontaneous
  Country: NL (occurrence: NL)
  Receive Date: 20191017
  Receipt Date: 20191017
  Transmission Date: 20200122
  Serious: Yes (Hospitalization, Other)
  Sender: FDA-Public Use
  Company Number: NL-AMNEAL PHARMACEUTICALS-2019-AMRX-02292

PATIENT
  Age: 23 Year
  Sex: Male

DRUGS (3)
  1. AMLODIPINE BESYLATE. [Suspect]
     Active Substance: AMLODIPINE BESYLATE
     Indication: PRODUCT USED FOR UNKNOWN INDICATION
     Dosage: MORE THAN 100 TABLETS
     Route: 065
  2. LEVOTHYROXINE SODIUM. [Suspect]
     Active Substance: LEVOTHYROXINE SODIUM
     Indication: PRODUCT USED FOR UNKNOWN INDICATION
     Dosage: UNSPECIFIED NUMBER OF TABLETS, SINGLE
     Route: 065
  3. MECLIZINE HYDROCHLORIDE. [Suspect]
     Active Substance: MECLIZINE HYDROCHLORIDE
     Indication: PRODUCT USED FOR UNKNOWN INDICATION
     Dosage: UNSPECIFIED NUMBER OF TABLETS
     Route: 065

REACTIONS (5)
  - Hypotension [Recovering/Resolving]
  - Pulmonary oedema [Recovering/Resolving]
  - Intentional overdose [Unknown]
  - Tachycardia [Recovering/Resolving]
  - Respiratory distress [Recovering/Resolving]
